FAERS Safety Report 5079936-7 (Version None)
Quarter: 2006Q3

REPORT INFORMATION
  Report Type: 
  Country: None (occurrence: None)
  Receive Date: 20060720
  Receipt Date: 20050705
  Transmission Date: 20061208
  Serious: Yes (Hospitalization, Other)
  Sender: FDA-Public Use
  Company Number: 2005100275

PATIENT
  Age: 66 Year
  Sex: Female
  Weight: 73.9 kg

DRUGS (3)
  1. CELEBREX [Suspect]
     Indication: ILL-DEFINED DISORDER
     Dosage: (200 MG,1 D)
  2. VALSARTAN [Concomitant]
  3. MOBIC [Concomitant]

REACTIONS (6)
  - BRONCHITIS ACUTE [None]
  - CORONARY ARTERY OCCLUSION [None]
  - CYSTITIS ESCHERICHIA [None]
  - HAEMOPTYSIS [None]
  - HYPOXIA [None]
  - MYOCARDIAL INFARCTION [None]
